FAERS Safety Report 6551452-2 (Version None)
Quarter: 2010Q1

REPORT INFORMATION
  Report Type: 
  Country: None (occurrence: None)
  Receive Date: 20100126
  Receipt Date: 20100122
  Transmission Date: 20100710
  Serious: Yes (Death, Hospitalization, Other)
  Sender: FDA-Public Use
  Company Number: DE-BRISTOL-MYERS SQUIBB COMPANY-14385462

PATIENT
  Age: 44 Year
  Sex: Female

DRUGS (5)
  1. DASATINIB [Suspect]
     Indication: LEUKAEMIA
     Dosage: 14APR05-11APR06(140MG);22MAY06-04MAR07(80MG);05MAR07 (100MG) CONTI
     Route: 048
     Dates: start: 20070305
  2. SPASMEX [Concomitant]
     Dates: end: 20081101
  3. OMEPRAZOL [Concomitant]
     Dates: end: 20081101
  4. ABILIFY [Concomitant]
     Dates: end: 20081101
  5. SOLVEX [Concomitant]
     Dates: end: 20081101

REACTIONS (4)
  - CARDIAC ARREST [None]
  - PLEURAL EFFUSION [None]
  - PNEUMONIA [None]
  - SEPSIS [None]
